FAERS Safety Report 6860106-4 (Version None)
Quarter: 2010Q3

REPORT INFORMATION
  Report Type: 
  Country: None (occurrence: None)
  Receive Date: 20100720
  Receipt Date: 20100712
  Transmission Date: 20110219
  Serious: Yes (Hospitalization, Other)
  Sender: FDA-Public Use
  Company Number: JP-PFIZER INC-2009184512

PATIENT
  Age: 58 Year
  Sex: Male
  Weight: 50 kg

DRUGS (9)
  1. SUNITINIB MALATE [Suspect]
     Indication: RENAL CELL CARCINOMA
     Dosage: 50 MG, 1X/DAY
     Route: 048
     Dates: start: 20090120
  2. SUNITINIB MALATE [Suspect]
     Dosage: 37.5 MG, 1X/DAY
     Route: 048
     Dates: start: 20090304
  3. AMLODIN [Concomitant]
     Dosage: UNK
     Route: 048
  4. FERROUS CITRATE [Concomitant]
     Dosage: UNK
     Route: 048
  5. LOXOPROFEN [Concomitant]
     Dosage: UNK
  6. ZANTAC [Concomitant]
     Dosage: UNK
     Route: 048
  7. LENDORMIN [Concomitant]
     Dosage: UNK
     Route: 048
  8. MYSLEE [Concomitant]
     Dosage: UNK
     Route: 048
  9. ADONA [Concomitant]
     Dosage: UNK
     Route: 048

REACTIONS (3)
  - ANAEMIA [None]
  - GINGIVAL BLEEDING [None]
  - HYPERCALCAEMIA [None]
